FAERS Safety Report 24363011 (Version 1)
Quarter: 2024Q3

REPORT INFORMATION
  Report Type: Spontaneous
  Country: US (occurrence: None)
  Receive Date: 20240923
  Receipt Date: 20240923
  Transmission Date: 20241016
  Serious: Yes (Other)
  Sender: Public
  Company Number: None

PATIENT

DRUGS (1)
  1. BLINATUMOMAB [Suspect]
     Active Substance: BLINATUMOMAB

REACTIONS (4)
  - Needle issue [None]
  - Accidental exposure to product [None]
  - Exposure via skin contact [None]
  - Accidental exposure to product [None]

NARRATIVE: CASE EVENT DATE: 20240923
